FAERS Safety Report 8488014-6 (Version None)
Quarter: 2012Q3

REPORT INFORMATION
  Report Type: 
  Country: None (occurrence: None)
  Receive Date: 20120705
  Receipt Date: 20120629
  Transmission Date: 20120928
  Serious: Yes (Hospitalization, Other)
  Sender: FDA-Public Use
  Company Number: PHHY2012DE051489

PATIENT
  Age: 70 Year
  Sex: Female

DRUGS (3)
  1. AFINITOR [Suspect]
     Indication: RENAL CELL CARCINOMA
     Dosage: 10 MG PER DAY
     Route: 048
     Dates: start: 20120526, end: 20120530
  2. AFINITOR [Suspect]
     Dosage: DAILY ALTERNATING SCHEDULE OF 10 MG AND 5 MG DOSE
     Route: 048
     Dates: start: 20120607, end: 20120613
  3. AFINITOR [Suspect]
     Dosage: 5 MG, EVERY OTHER DAY
     Dates: start: 20120607, end: 20120613

REACTIONS (7)
  - GENERAL PHYSICAL HEALTH DETERIORATION [None]
  - ANAEMIA [None]
  - DYSPNOEA [None]
  - FATIGUE [None]
  - ASTHENIA [None]
  - PLEURAL EFFUSION [None]
  - PNEUMONITIS [None]
